FAERS Safety Report 18559361 (Version 1)
Quarter: 2020Q4

REPORT INFORMATION
  Report Type: Spontaneous
  Country: NO (occurrence: NO)
  Receive Date: 20201130
  Receipt Date: 20201130
  Transmission Date: 20210114
  Serious: Yes (Hospitalization, Other)
  Sender: FDA-Public Use
  Company Number: NO-JNJFOC-20201133951

PATIENT
  Age: 40 Year
  Sex: Female
  Weight: 97 kg

DRUGS (1)
  1. TOPIMAX (TOPIRAMATE) [Suspect]
     Active Substance: TOPIRAMATE
     Indication: MIGRAINE PROPHYLAXIS
     Route: 048
     Dates: start: 20200908, end: 20201007

REACTIONS (4)
  - Hypoaesthesia oral [Unknown]
  - Muscle contractions involuntary [Recovering/Resolving]
  - Sensory loss [Unknown]
  - Dysphagia [Recovering/Resolving]

NARRATIVE: CASE EVENT DATE: 20201005
